FAERS Safety Report 15637457 (Version 1)
Quarter: 2018Q4

REPORT INFORMATION
  Report Type: Spontaneous
  Country: US (occurrence: US)
  Receive Date: 20181120
  Receipt Date: 20181120
  Transmission Date: 20190205
  Serious: No
  Sender: FDA-Public Use
  Company Number: US-JNJFOC-20180532541

PATIENT
  Sex: Male

DRUGS (15)
  1. ATORVASTATIN [Concomitant]
     Active Substance: ATORVASTATIN
  2. HYDROCHLOROTHIAZIDE. [Concomitant]
     Active Substance: HYDROCHLOROTHIAZIDE
  3. VITAMIN E                          /00110501/ [Concomitant]
     Active Substance: TOCOPHEROL
  4. IMBRUVICA [Suspect]
     Active Substance: IBRUTINIB
     Indication: MANTLE CELL LYMPHOMA
     Route: 048
     Dates: end: 201804
  5. METFORMIN [Concomitant]
     Active Substance: METFORMIN HYDROCHLORIDE
  6. AMLODIPINE [Concomitant]
     Active Substance: AMLODIPINE BESYLATE
  7. DIAZEPAM. [Concomitant]
     Active Substance: DIAZEPAM
  8. IMBRUVICA [Suspect]
     Active Substance: IBRUTINIB
     Indication: MANTLE CELL LYMPHOMA
     Route: 048
     Dates: start: 2017
  9. VITAMIN A                          /00056001/ [Concomitant]
     Active Substance: RETINOL
  10. IMBRUVICA [Suspect]
     Active Substance: IBRUTINIB
     Indication: MANTLE CELL LYMPHOMA
     Route: 048
     Dates: start: 20180423, end: 2018
  11. VITAMIN B NOS [Concomitant]
     Active Substance: VITAMIN B
  12. VITAMIN D [Concomitant]
     Active Substance: CHOLECALCIFEROL
  13. TAMSULOSIN [Concomitant]
     Active Substance: TAMSULOSIN
  14. MULTIVITAMINS [Concomitant]
     Active Substance: VITAMINS
  15. VALSARTAN. [Concomitant]
     Active Substance: VALSARTAN

REACTIONS (4)
  - Adverse drug reaction [Unknown]
  - Vitamin C deficiency [Unknown]
  - Fatigue [Unknown]
  - Asthenia [Unknown]
